FAERS Safety Report 7581200-9 (Version None)
Quarter: 2011Q2

REPORT INFORMATION
  Report Type: 
  Country: None (occurrence: None)
  Receive Date: 20110629
  Receipt Date: 20110624
  Transmission Date: 20111010
  Serious: Yes (Other)
  Sender: FDA-Public Use
  Company Number: US-PFIZER INC-2011142403

PATIENT
  Sex: Male

DRUGS (1)
  1. FIBERCON [Suspect]
     Dosage: UNK
     Route: 065

REACTIONS (1)
  - ASPIRATION [None]
